FAERS Safety Report 5052147-7 (Version None)
Quarter: 2006Q3

REPORT INFORMATION
  Report Type: 
  Country: None (occurrence: None)
  Receive Date: 20060712
  Receipt Date: 20060712
  Transmission Date: 20061208
  Serious: Yes (Other)
  Sender: FDA-Public Use
  Company Number: None

PATIENT
  Age: 77 Year
  Sex: Male
  Weight: 101.7 kg

DRUGS (1)
  1. BACTRIM DS [Suspect]
     Indication: INDWELLING CATHETER MANAGEMENT
     Dosage: Q12H X 3, Q12H X 3,ORAL
     Route: 048
     Dates: start: 20060428, end: 20060429

REACTIONS (1)
  - ERYTHEMA [None]
